FAERS Safety Report 9559305 (Version 2)
Quarter: 2013Q3

REPORT INFORMATION
  Report Type: Report from Study
  Country: DE (occurrence: DE)
  Receive Date: 20130927
  Receipt Date: 20130927
  Transmission Date: 20140515
  Serious: Yes (Hospitalization)
  Sender: FDA-Public Use
  Company Number: PHHY2013DE092003

PATIENT
  Sex: Female
  Weight: 80 kg

DRUGS (4)
  1. AFINITOR [Suspect]
     Indication: BREAST CANCER METASTATIC
     Dosage: 10 MG, QD
     Route: 048
     Dates: start: 20130709, end: 20130804
  2. AFINITOR [Suspect]
     Dosage: 2.5 MG, UNK
     Route: 048
     Dates: start: 20130902
  3. EXEMESTANE [Concomitant]
     Indication: BREAST CANCER METASTATIC
     Dosage: 25 MG, QD
     Route: 048
     Dates: start: 20130709, end: 20130804
  4. EXEMESTANE [Concomitant]
     Dosage: 25 UNK, UNK
     Route: 048
     Dates: start: 20130902

REACTIONS (1)
  - Gingivitis [Recovered/Resolved]
